FAERS Safety Report 13776106 (Version 5)
Quarter: 2019Q1

REPORT INFORMATION
  Report Type: Spontaneous
  Country: CA (occurrence: CA)
  Receive Date: 20170721
  Receipt Date: 20190322
  Transmission Date: 20190417
  Serious: Yes (Other)
  Sender: FDA-Public Use
  Company Number: CA-PFIZER INC-2017200685

PATIENT
  Age: 57 Year
  Sex: Female

DRUGS (9)
  1. CELEBREX [Suspect]
     Active Substance: CELECOXIB
     Dosage: UNK, DAILY
     Route: 048
  2. LEFLUNOMIDE. [Concomitant]
     Active Substance: LEFLUNOMIDE
     Indication: RHEUMATOID ARTHRITIS
     Dosage: UNK (3 TIMES A WEEK)
  3. XELJANZ [Suspect]
     Active Substance: TOFACITINIB CITRATE
     Dosage: 5 MG, TWICE A DAY
     Route: 048
     Dates: start: 2017, end: 201707
  4. SALAZOPYRIN [Concomitant]
     Active Substance: SULFASALAZINE
     Indication: RHEUMATOID ARTHRITIS
     Dosage: UNK, 2X/DAY
     Route: 048
  5. XELJANZ [Suspect]
     Active Substance: TOFACITINIB CITRATE
     Indication: RHEUMATOID ARTHRITIS
     Dosage: 5 MG, TWICE A DAY
     Route: 048
     Dates: start: 20161213, end: 201704
  6. XELJANZ [Suspect]
     Active Substance: TOFACITINIB CITRATE
     Dosage: 5 MG, TWICE A DAY
     Route: 048
     Dates: end: 201901
  7. METHOTREXATE. [Concomitant]
     Active Substance: METHOTREXATE
     Indication: RHEUMATOID ARTHRITIS
     Dosage: 15 MG, WEEKLY
     Route: 048
  8. ARAVA [Concomitant]
     Active Substance: LEFLUNOMIDE
     Indication: RHEUMATOID ARTHRITIS
     Dosage: UNK, 3 TIMES A WEEK
  9. CELEBREX [Suspect]
     Active Substance: CELECOXIB
     Indication: RHEUMATOID ARTHRITIS
     Dosage: 1 PILL, ONCE A DAY
     Route: 048
     Dates: start: 1997, end: 2017

REACTIONS (7)
  - Renal impairment [Unknown]
  - Dry mouth [Unknown]
  - Gamma-glutamyltransferase increased [Unknown]
  - Alopecia [Not Recovered/Not Resolved]
  - Fibromyalgia [Unknown]
  - Sjogren^s syndrome [Not Recovered/Not Resolved]
  - Folliculitis [Not Recovered/Not Resolved]

NARRATIVE: CASE EVENT DATE: 201704
